FAERS Safety Report 4396478-2 (Version None)
Quarter: 2004Q3

REPORT INFORMATION
  Report Type: 
  Country: None (occurrence: None)
  Receive Date: 20040709
  Receipt Date: 20040625
  Transmission Date: 20050211
  Serious: Yes (Other)
  Sender: FDA-Public Use
  Company Number: PT-JNJFOC-20040607708

PATIENT
  Age: 8 Year
  Sex: Female
  Weight: 28 kg

DRUGS (1)
  1. CONCERTA [Suspect]
     Indication: ATTENTION DEFICIT/HYPERACTIVITY DISORDER
     Dosage: 18 MG, ORAL
     Route: 048
     Dates: start: 20031201, end: 20040501

REACTIONS (4)
  - ELECTROOCULOGRAM ABNORMAL [None]
  - MACULOPATHY [None]
  - RETINAL DISORDER [None]
  - RETINOPATHY [None]
